FAERS Safety Report 7803329 (Version 5)
Quarter: 2015Q2

REPORT INFORMATION
  Report Type: Spontaneous
  Country: US (occurrence: US)
  Receive Date: 20110208
  Receipt Date: 20150401
  Transmission Date: 20150821
  Serious: Yes (Hospitalization, Other)
  Sender: FDA-Public Use
  Company Number: US-BAYER-2011-011903

PATIENT
  Age: 36 Year
  Sex: Female
  Weight: 50 kg

DRUGS (25)
  1. EFFEXOR [Concomitant]
     Active Substance: VENLAFAXINE HYDROCHLORIDE
     Indication: DEPRESSION
     Dosage: UNK
     Dates: start: 200003
  2. OCELLA [Suspect]
     Active Substance: DROSPIRENONE\ETHINYL ESTRADIOL
  3. BACTRIM [Concomitant]
     Active Substance: SULFAMETHOXAZOLE\TRIMETHOPRIM
     Indication: URINARY TRACT INFECTION
     Dosage: 800 / 160 MG, 2 TABLETS PER DAY
     Dates: start: 20070110, end: 20070112
  4. CELEBREX [Concomitant]
     Active Substance: CELECOXIB
     Indication: PAIN
     Dosage: 200 MG, QD
     Dates: start: 20061224, end: 20070113
  5. CLINDAMYCIN [Concomitant]
     Active Substance: CLINDAMYCIN\CLINDAMYCIN PHOSPHATE
     Dosage: UNK
     Dates: start: 2007
  6. AMBIEN [Concomitant]
     Active Substance: ZOLPIDEM TARTRATE
     Indication: INSOMNIA
     Dosage: UNK
     Dates: start: 2000, end: 2001
  7. AMBIEN [Concomitant]
     Active Substance: ZOLPIDEM TARTRATE
     Indication: INSOMNIA
     Dosage: UNK
     Dates: start: 2006, end: 2007
  8. VALTREX [Concomitant]
     Active Substance: VALACYCLOVIR HYDROCHLORIDE
     Indication: ANTIVIRAL TREATMENT
     Dosage: 1 G, BID
     Dates: start: 20070110, end: 20070113
  9. YAZ [Suspect]
     Active Substance: DROSPIRENONE\ETHINYL ESTRADIOL
     Dosage: UNK
     Dates: start: 2006, end: 2007
  10. MEDROXYPROGESTERONE [Concomitant]
     Active Substance: MEDROXYPROGESTERONE
     Indication: MENSTRUATION IRREGULAR
     Dosage: UNK
     Dates: start: 200704, end: 200801
  11. ZANAFLEX [Concomitant]
     Active Substance: TIZANIDINE HYDROCHLORIDE
     Indication: MUSCLE SPASMS
     Dosage: 4 MG, 2 TABLETS, QD
     Dates: start: 20061224, end: 20070113
  12. SONATA [Concomitant]
     Active Substance: ZALEPLON
     Indication: MUSCLE SPASMS
     Dosage: UNK
  13. IBUPROFEN. [Concomitant]
     Active Substance: IBUPROFEN
     Dosage: UNK
     Dates: start: 20071017, end: 20071021
  14. ZOLOFT [Concomitant]
     Active Substance: SERTRALINE HYDROCHLORIDE
     Indication: DEPRESSION
  15. SKELAXIN [Concomitant]
     Active Substance: METAXALONE
     Indication: MUSCLE SPASMS
     Dosage: 800 MG, 2 TABLETS, QD
     Dates: start: 20061224, end: 20070113
  16. YASMIN [Suspect]
     Active Substance: DROSPIRENONE\ETHINYL ESTRADIOL
     Indication: PREMENSTRUAL SYNDROME
  17. POTASSIUM [Concomitant]
     Active Substance: POTASSIUM
     Dosage: UNK
     Dates: start: 200701
  18. EFFEXOR [Concomitant]
     Active Substance: VENLAFAXINE HYDROCHLORIDE
     Indication: ANXIETY
     Dosage: UNK
     Dates: start: 200202
  19. ZOLOFT [Concomitant]
     Active Substance: SERTRALINE HYDROCHLORIDE
     Indication: ANXIETY
     Dosage: UNK
     Dates: start: 2001
  20. OMACOR [Concomitant]
     Active Substance: OMEGA-3-ACID ETHYL ESTERS
     Indication: BLOOD CHOLESTEROL INCREASED
     Dosage: 1 G, QD
     Dates: start: 20061024, end: 20061227
  21. AMITRIPTYLINE [Concomitant]
     Active Substance: AMITRIPTYLINE
     Indication: PAIN
     Dosage: 50 MG, QD
     Dates: start: 20061224, end: 20070116
  22. YASMIN [Suspect]
     Active Substance: DROSPIRENONE\ETHINYL ESTRADIOL
     Indication: CONTRACEPTION
     Dosage: UNK
     Route: 048
     Dates: start: 200311, end: 200801
  23. LEVAQUIN [Concomitant]
     Active Substance: LEVOFLOXACIN
     Indication: ANTIBIOTIC THERAPY
     Dosage: 500 MG, QD
     Dates: start: 20070112, end: 20070113
  24. SONATA [Concomitant]
     Active Substance: ZALEPLON
     Indication: MUSCLE SPASMS
     Dosage: 10 MG, 2 TABLETS, HS
     Dates: start: 20061224, end: 20070113
  25. DIFLUCAN [Concomitant]
     Active Substance: FLUCONAZOLE
     Indication: URINARY TRACT INFECTION
     Dosage: 150 MG, QD
     Dates: start: 20070108

REACTIONS (25)
  - Asthenia [None]
  - Balance disorder [None]
  - Eye movement disorder [None]
  - Loss of consciousness [None]
  - Injury [None]
  - Disturbance in attention [None]
  - Seizure [None]
  - Dizziness [None]
  - Learning disorder [None]
  - Cerebrovascular accident [None]
  - Fatigue [None]
  - Cognitive disorder [None]
  - General physical health deterioration [None]
  - Hemiparesis [None]
  - Diarrhoea [None]
  - Deafness unilateral [None]
  - Vertigo [None]
  - Nausea [None]
  - Amnesia [None]
  - Malaise [None]
  - Speech disorder [None]
  - Dysphagia [None]
  - Headache [None]
  - Pain [None]
  - Visual acuity reduced [None]

NARRATIVE: CASE EVENT DATE: 20070112
